FAERS Safety Report 6655142-7 (Version None)
Quarter: 2010Q1

REPORT INFORMATION
  Report Type: 
  Country: None (occurrence: None)
  Receive Date: 20100317
  Receipt Date: 20100201
  Transmission Date: 20100710
  Serious: No
  Sender: FDA-Public Use
  Company Number: DSA_42529_2010

PATIENT
  Sex: Male

DRUGS (1)
  1. XENAZINE [Suspect]
     Indication: DRUG USE FOR UNKNOWN INDICATION
     Dosage: ORAL, 12.5 MG TID ORAL
     Route: 048

REACTIONS (3)
  - COGNITIVE DISORDER [None]
  - DRUG ADMINISTRATION ERROR [None]
  - FEAR [None]
